FAERS Safety Report 5801243-2 (Version None)
Quarter: 2008Q3

REPORT INFORMATION
  Report Type: 
  Country: None (occurrence: None)
  Receive Date: 20080707
  Receipt Date: 20080625
  Transmission Date: 20090109
  Serious: Yes (Hospitalization)
  Sender: FDA-Public Use
  Company Number: US-JNJFOC-20080606710

PATIENT
  Sex: Female
  Weight: 66.68 kg

DRUGS (3)
  1. DURAGESIC-100 [Suspect]
     Indication: PAIN
     Route: 062
  2. CALCIUM SUPPLEMENTS [Concomitant]
     Indication: BONE DISORDER
     Route: 048
  3. PLAQUENIL [Concomitant]
     Indication: SYSTEMIC LUPUS ERYTHEMATOSUS
     Route: 048

REACTIONS (2)
  - GALLBLADDER DISORDER [None]
  - PHARMACEUTICAL PRODUCT COMPLAINT [None]
